FAERS Safety Report 6409836-9 (Version None)
Quarter: 2009Q4

REPORT INFORMATION
  Report Type: 
  Country: None (occurrence: None)
  Receive Date: 20091022
  Receipt Date: 20091013
  Transmission Date: 20100525
  Serious: Yes (Death, Hospitalization, Other)
  Sender: FDA-Public Use
  Company Number: BE-ABBOTT-09P-013-0596354-00

PATIENT
  Sex: Male

DRUGS (8)
  1. TEVETEN [Suspect]
     Indication: HYPERTENSION
     Route: 048
     Dates: start: 20080630, end: 20081015
  2. CRESTOR [Concomitant]
     Indication: HYPERCHOLESTEROLAEMIA
     Route: 048
     Dates: start: 20080527
  3. BIOFENAC [Concomitant]
     Indication: MYALGIA
     Route: 048
  4. MEDROL [Concomitant]
     Indication: DRUG USE FOR UNKNOWN INDICATION
     Route: 048
     Dates: start: 20080915
  5. SPIRIVA [Concomitant]
     Indication: DRUG USE FOR UNKNOWN INDICATION
     Route: 050
     Dates: start: 20060101
  6. SERETIDE [Concomitant]
     Indication: DRUG USE FOR UNKNOWN INDICATION
     Dosage: 5/500
     Route: 050
     Dates: start: 20060101
  7. FUROSEMIDE [Concomitant]
     Indication: DRUG USE FOR UNKNOWN INDICATION
     Route: 048
     Dates: start: 20070101
  8. DURAGESIC-100 [Concomitant]
     Indication: DRUG USE FOR UNKNOWN INDICATION
     Dates: start: 20080901, end: 20081201

REACTIONS (5)
  - ALCOHOLIC SEIZURE [None]
  - CHRONIC OBSTRUCTIVE PULMONARY DISEASE [None]
  - COMA [None]
  - HYPOTENSION [None]
  - PROSTATE CANCER METASTATIC [None]
